FAERS Safety Report 5381882-6 (Version None)
Quarter: 2007Q3

REPORT INFORMATION
  Report Type: 
  Country: None (occurrence: None)
  Receive Date: 20070705
  Receipt Date: 20070618
  Transmission Date: 20080115
  Serious: Yes (Hospitalization)
  Sender: FDA-Public Use
  Company Number: GXBR2007US01256

PATIENT
  Age: 43 Year
  Sex: Female

DRUGS (6)
  1. TRAMADOL HCL [Suspect]
     Indication: DRUG USE FOR UNKNOWN INDICATION
     Dosage: UNK, UNK, UNK
     Dates: start: 20060531
  2. BACLOFEN [Concomitant]
  3. PROTON PUMOP INHIBITORS       (NO INGREDIENTS/SUBSTANCES) [Concomitant]
  4. DICYCLOMINE [Concomitant]
  5. BUSPIRONE HCL [Concomitant]
  6. EPHEDRINE/GUAIFENESIN (EPHEDRINE, GUAIFENESIN) [Concomitant]

REACTIONS (14)
  - AGITATION [None]
  - BLOOD CREATININE INCREASED [None]
  - BLOOD PRESSURE INCREASED [None]
  - BLOOD UREA INCREASED [None]
  - COLD SWEAT [None]
  - DISORIENTATION [None]
  - HYPERHIDROSIS [None]
  - INTENTIONAL OVERDOSE [None]
  - LOSS OF CONSCIOUSNESS [None]
  - MENTAL DISORDER [None]
  - MYDRIASIS [None]
  - REPETITIVE SPEECH [None]
  - TARDIVE DYSKINESIA [None]
  - UNRESPONSIVE TO STIMULI [None]
